FAERS Safety Report 5777081-6 (Version None)
Quarter: 2008Q2

REPORT INFORMATION
  Report Type: 
  Country: None (occurrence: None)
  Receive Date: 20080616
  Receipt Date: 20080609
  Transmission Date: 20081010
  Serious: Yes (Other)
  Sender: FDA-Public Use
  Company Number: 08-259

PATIENT
  Age: 7 Year
  Sex: Male

DRUGS (2)
  1. VALPRIC ACID, [Suspect]
     Dosage: 135 MG/L
  2. SULTHIAMINE [Concomitant]

REACTIONS (8)
  - ALOPECIA [None]
  - ANOREXIA [None]
  - COAGULOPATHY [None]
  - DYSGEUSIA [None]
  - HAIR COLOUR CHANGES [None]
  - HAIR TEXTURE ABNORMAL [None]
  - PAROSMIA [None]
  - VOMITING [None]
